FAERS Safety Report 6099221-4 (Version None)
Quarter: 2009Q1

REPORT INFORMATION
  Report Type: 
  Country: None (occurrence: None)
  Receive Date: 20090225
  Receipt Date: 20090225
  Transmission Date: 20090719
  Serious: Yes (Life-Threatening)
  Sender: FDA-Public Use
  Company Number: None

PATIENT
  Age: 70 Year
  Sex: Female
  Weight: 89.8122 kg

DRUGS (1)
  1. OXALIPLATIN [Suspect]
     Indication: PANCREATIC CARCINOMA
     Dosage: 155 MG EVERY 2 WEEKS IV ONGOING
     Route: 042
     Dates: start: 20090121, end: 20090224

REACTIONS (2)
  - RASH [None]
  - VOMITING [None]
